FAERS Safety Report 10331294 (Version 1)
Quarter: 2014Q3

REPORT INFORMATION
  Report Type: Spontaneous
  Country: CA (occurrence: None)
  Receive Date: 20140721
  Receipt Date: 20140721
  Transmission Date: 20150326
  Serious: No
  Sender: FDA-Public Use
  Company Number: None

PATIENT
  Age: 38 Year
  Sex: Female
  Weight: 106.7 kg

DRUGS (2)
  1. IDARUBICIN [Suspect]
     Active Substance: IDARUBICIN
     Dates: end: 20140701
  2. CYTARABINE. [Suspect]
     Active Substance: CYTARABINE
     Dates: end: 20140701

REACTIONS (3)
  - Cardiac arrest [None]
  - Sepsis [None]
  - Intestinal ischaemia [None]

NARRATIVE: CASE EVENT DATE: 20140708
